FAERS Safety Report 7962027-2 (Version None)
Quarter: 2011Q4

REPORT INFORMATION
  Report Type: 
  Country: None (occurrence: None)
  Receive Date: 20111121
  Receipt Date: 20110919
  Transmission Date: 20120403
  Serious: No
  Sender: FDA-Public Use
  Company Number: 1000024028

PATIENT
  Sex: Female

DRUGS (4)
  1. KLONOPIN [Concomitant]
  2. NEURONTIN [Concomitant]
  3. THYROID MEDICATION NOS [Concomitant]
  4. VIIBRYD [Suspect]
     Indication: DEPRESSION
     Dosage: 10 MG (10 MG, 1 IN 1 D), ORAL
     Route: 048
     Dates: start: 20110906

REACTIONS (6)
  - DEPRESSION [None]
  - NAUSEA [None]
  - DIARRHOEA [None]
  - PANIC ATTACK [None]
  - HEADACHE [None]
  - MALAISE [None]
